FAERS Safety Report 10357273 (Version 1)
Quarter: 2014Q3

REPORT INFORMATION
  Report Type: Spontaneous
  Country: RO (occurrence: RO)
  Receive Date: 20140801
  Receipt Date: 20140801
  Transmission Date: 20150326
  Serious: Yes (Other)
  Sender: FDA-Public Use
  Company Number: PHHY2014RO092262

PATIENT
  Age: 75 Year
  Sex: Female

DRUGS (4)
  1. SULFASALAZINE. [Suspect]
     Active Substance: SULFASALAZINE
     Indication: RHEUMATOID ARTHRITIS
     Dates: start: 2006
  2. METHOTREXATE [Suspect]
     Active Substance: METHOTREXATE
     Dates: start: 2012, end: 2013
  3. LEFLUNOMIDE. [Suspect]
     Active Substance: LEFLUNOMIDE
     Indication: RHEUMATOID ARTHRITIS
     Dates: start: 2007
  4. METHOTREXATE [Suspect]
     Active Substance: METHOTREXATE
     Indication: RHEUMATOID ARTHRITIS
     Dates: start: 2005, end: 2010

REACTIONS (10)
  - Hypergammaglobulinaemia [Unknown]
  - Hypoalbuminaemia [Unknown]
  - Lymphoproliferative disorder [Unknown]
  - Rheumatoid arthritis [Unknown]
  - Hypergammaglobulinaemia benign monoclonal [Unknown]
  - Gastrointestinal disorder [Unknown]
  - Hepatomegaly [Unknown]
  - Monoclonal gammopathy [Unknown]
  - Lymphadenopathy [Unknown]
  - Drug ineffective [Unknown]
